FAERS Safety Report 5230339-1 (Version None)
Quarter: 2007Q1

REPORT INFORMATION
  Report Type: 
  Country: None (occurrence: None)
  Receive Date: 20070206
  Receipt Date: 20070128
  Transmission Date: 20070707
  Serious: Yes (Other)
  Sender: FDA-Public Use
  Company Number: US-JNJFOC-20070107790

PATIENT
  Age: 25 Year
  Sex: Male

DRUGS (5)
  1. FENTANYL [Suspect]
     Indication: INTENTIONAL DRUG MISUSE
     Route: 062
  2. COCAINE [Suspect]
     Indication: DRUG USE FOR UNKNOWN INDICATION
     Route: 065
  3. OXYCONTIN [Suspect]
     Indication: INTENTIONAL DRUG MISUSE
     Route: 065
  4. METHAMPHETAMINES [Suspect]
     Indication: INTENTIONAL DRUG MISUSE
     Route: 065
  5. ALCOHOL [Suspect]
     Indication: DRUG USE FOR UNKNOWN INDICATION
     Route: 065

REACTIONS (10)
  - BLINDNESS [None]
  - CHEST PAIN [None]
  - CONVULSION [None]
  - DYSSTASIA [None]
  - INSOMNIA [None]
  - INTENTIONAL DRUG MISUSE [None]
  - MOVEMENT DISORDER [None]
  - OEDEMA PERIPHERAL [None]
  - SELF-MEDICATION [None]
  - TREMOR [None]
